FAERS Safety Report 7767907-9 (Version None)
Quarter: 2011Q3

REPORT INFORMATION
  Report Type: 
  Country: None (occurrence: None)
  Receive Date: 20110922
  Receipt Date: 20110616
  Transmission Date: 20111222
  Serious: No
  Sender: FDA-Public Use
  Company Number: US-ASTRAZENECA-2011SE36863

PATIENT
  Sex: Male

DRUGS (8)
  1. LITHIUM CARBONATE [Concomitant]
  2. DEPAKOTE [Concomitant]
  3. ALPRAZOLAM [Concomitant]
  4. SEROQUEL XR [Suspect]
     Indication: AFFECTIVE DISORDER
     Route: 048
     Dates: start: 20040101, end: 20090101
  5. DIAZEPAM [Concomitant]
  6. OXYCODONE HCL [Concomitant]
     Indication: TOOTH DISORDER
  7. KEFLEX [Concomitant]
     Indication: TOOTH DISORDER
  8. SEROQUEL XR [Suspect]
     Route: 048
     Dates: start: 20110401

REACTIONS (4)
  - AGORAPHOBIA [None]
  - HEAT RASH [None]
  - FEELING HOT [None]
  - MENTAL DISORDER [None]
